FAERS Safety Report 18328032 (Version 2)
Quarter: 2021Q3

REPORT INFORMATION
  Report Type: Spontaneous
  Country: CA (occurrence: CA)
  Receive Date: 20200929
  Receipt Date: 20210712
  Transmission Date: 20211014
  Serious: Yes (Hospitalization, Other)
  Sender: FDA-Public Use
  Company Number: CA-JNJFOC-20200943840

PATIENT
  Age: 34 Year
  Sex: Female

DRUGS (14)
  1. METHYLPREDNISOLONE. [Suspect]
     Active Substance: METHYLPREDNISOLONE
     Indication: PRODUCT USED FOR UNKNOWN INDICATION
     Route: 042
  2. IMODIUM [Suspect]
     Active Substance: LOPERAMIDE HYDROCHLORIDE
     Indication: DIARRHOEA
     Route: 065
  3. MESALAZINE [Concomitant]
     Active Substance: MESALAMINE
     Indication: PROCTITIS
  4. PREDNISONE. [Concomitant]
     Active Substance: PREDNISONE
     Route: 048
  5. ONDANSETRON HYDROCHLORIDE. [Suspect]
     Active Substance: ONDANSETRON HYDROCHLORIDE
     Indication: DIARRHOEA
     Route: 065
  6. CAPTOPRIL. [Concomitant]
     Active Substance: CAPTOPRIL
  7. CIPROFLOXACIN HYDROCHLORIDE. [Suspect]
     Active Substance: CIPROFLOXACIN HYDROCHLORIDE
     Indication: PRODUCT USED FOR UNKNOWN INDICATION
     Route: 065
  8. CALCIUM [Concomitant]
     Active Substance: CALCIUM
     Route: 048
  9. SOLU?MEDROL [Suspect]
     Active Substance: METHYLPREDNISOLONE SODIUM SUCCINATE
     Indication: COLITIS ULCERATIVE
     Route: 042
  10. FLAGYL [Concomitant]
     Active Substance: METRONIDAZOLE\METRONIDAZOLE HYDROCHLORIDE
  11. POTASSIUM [Concomitant]
     Active Substance: POTASSIUM
     Route: 048
  12. 6?MP [Concomitant]
     Active Substance: MERCAPTOPURINE
  13. MESALAMINE. [Concomitant]
     Active Substance: MESALAMINE
     Route: 048
  14. ONDANSETRON [Concomitant]
     Active Substance: ONDANSETRON
     Route: 048

REACTIONS (21)
  - Calcium ionised decreased [Unknown]
  - Gastrointestinal sounds abnormal [Unknown]
  - Abnormal behaviour [Unknown]
  - Blood pressure abnormal [Unknown]
  - Dehydration [Unknown]
  - Pyrexia [Unknown]
  - Segmental diverticular colitis [Unknown]
  - Blood sodium decreased [Unknown]
  - Crohn^s disease [Unknown]
  - Feeding intolerance [Unknown]
  - Self-injurious ideation [Unknown]
  - Nausea [Unknown]
  - Drug ineffective [Unknown]
  - Blood potassium decreased [Unknown]
  - Chills [Unknown]
  - Abdominal pain upper [Unknown]
  - Pedal pulse abnormal [Unknown]
  - Diarrhoea [Unknown]
  - C-reactive protein increased [Unknown]
  - Night sweats [Unknown]
  - Vomiting [Unknown]
